FAERS Safety Report 7073097-0 (Version None)
Quarter: 2010Q4

REPORT INFORMATION
  Report Type: 
  Country: None (occurrence: None)
  Receive Date: 20101029
  Receipt Date: 20100618
  Transmission Date: 20110411
  Serious: No
  Sender: FDA-Public Use
  Company Number: A0856494A

PATIENT
  Age: 57 Year
  Sex: Female

DRUGS (3)
  1. ADVAIR DISKUS 100/50 [Suspect]
     Dosage: 1PUFF SINGLE DOSE
     Route: 055
     Dates: start: 20100306, end: 20100306
  2. VENTOLIN HFA [Concomitant]
  3. OXYGEN [Concomitant]

REACTIONS (9)
  - BRONCHOSPASM [None]
  - CHEST DISCOMFORT [None]
  - DECREASED APPETITE [None]
  - DYSGEUSIA [None]
  - DYSPNOEA [None]
  - HEART RATE INCREASED [None]
  - NAUSEA [None]
  - PALPITATIONS [None]
  - PRODUCT QUALITY ISSUE [None]
